FAERS Safety Report 4850187-1 (Version None)
Quarter: 2005Q4

REPORT INFORMATION
  Report Type: 
  Country: None (occurrence: None)
  Receive Date: 20051123
  Receipt Date: 20050919
  Transmission Date: 20060501
  Serious: No
  Sender: FDA-Public Use
  Company Number: 217880

PATIENT
  Age: 30 Year
  Sex: Male

DRUGS (1)
  1. RAPTIVA [Suspect]
     Indication: PSORIASIS
     Dosage: 0.6 ML,
     Dates: start: 20050916

REACTIONS (2)
  - OCULAR HYPERAEMIA [None]
  - PAIN [None]
